FAERS Safety Report 25014970 (Version 1)
Quarter: 2025Q1

REPORT INFORMATION
  Report Type: Spontaneous
  Country: US (occurrence: US)
  Receive Date: 20250226
  Receipt Date: 20250226
  Transmission Date: 20250409
  Serious: No
  Sender: JAZZ
  Company Number: US-JAZZ PHARMACEUTICALS-2025-US-004487

PATIENT
  Sex: Male

DRUGS (1)
  1. ZIIHERA [Suspect]
     Active Substance: ZANIDATAMAB-HRII
     Indication: Product used for unknown indication
     Route: 042

REACTIONS (2)
  - Gastrointestinal sounds abnormal [Unknown]
  - Diarrhoea [Recovered/Resolved]
